FAERS Safety Report 4582839-5 (Version None)
Quarter: 2005Q1

REPORT INFORMATION
  Report Type: 
  Country: None (occurrence: None)
  Receive Date: 20050121
  Receipt Date: 20041020
  Transmission Date: 20050727
  Serious: Yes (Other)
  Sender: FDA-Public Use
  Company Number: 2004087184

PATIENT
  Sex: Female

DRUGS (1)
  1. RELPAX [Suspect]
     Indication: HEADACHE

REACTIONS (4)
  - DYSPNOEA [None]
  - NECK PAIN [None]
  - PAIN IN EXTREMITY [None]
  - PAIN IN JAW [None]
